FAERS Safety Report 9328502 (Version 1)
Quarter: 2013Q2

REPORT INFORMATION
  Report Type: Spontaneous
  Country: US (occurrence: US)
  Receive Date: 20130604
  Receipt Date: 20130604
  Transmission Date: 20140414
  Serious: No
  Sender: FDA-Public Use
  Company Number: US-SANOFI-AVENTIS-2012SA050509

PATIENT
  Age: 66 Year
  Sex: Female

DRUGS (3)
  1. LANTUS SOLOSTAR [Suspect]
     Indication: PRODUCT USED FOR UNKNOWN INDICATION
     Dosage: 20-50 UNITS DAILY
     Route: 058
     Dates: start: 2011
  2. SOLOSTAR [Suspect]
     Indication: DEVICE THERAPY
     Dates: start: 2011
  3. GLIMEPIRIDE [Suspect]
     Indication: PRODUCT USED FOR UNKNOWN INDICATION
     Route: 065

REACTIONS (3)
  - Pain [Unknown]
  - Injection site pain [Unknown]
  - Blood glucose increased [Not Recovered/Not Resolved]
